FAERS Safety Report 12165669 (Version 1)
Quarter: 2016Q1

REPORT INFORMATION
  Report Type: Spontaneous
  Country: CA (occurrence: CA)
  Receive Date: 20160309
  Receipt Date: 20160309
  Transmission Date: 20160526
  Serious: Yes (Other)
  Sender: FDA-Public Use
  Company Number: CA-APOTEX-2016AP006937

PATIENT
  Age: 66 Year
  Sex: Male

DRUGS (1)
  1. APO-AMIODARONE [Suspect]
     Active Substance: AMIODARONE
     Indication: PRODUCT USED FOR UNKNOWN INDICATION
     Dosage: UNK
     Route: 065

REACTIONS (3)
  - Pulseless electrical activity [Unknown]
  - Syncope [Unknown]
  - Bradycardia [Recovered/Resolved]
